FAERS Safety Report 16139168 (Version 1)
Quarter: 2019Q1

REPORT INFORMATION
  Report Type: Spontaneous
  Country: US (occurrence: US)
  Receive Date: 20190226
  Receipt Date: 20190226
  Transmission Date: 20190418
  Serious: Yes (Other)
  Sender: FDA-Public Use
  Company Number: None

PATIENT
  Age: 70 Year
  Sex: Male
  Weight: 81.65 kg

DRUGS (1)
  1. SILDENAFIL 20MG [Suspect]
     Active Substance: SILDENAFIL
     Indication: ERECTILE DYSFUNCTION
     Dosage: ?          QUANTITY:1 PILL;?
     Route: 048
     Dates: start: 201706, end: 201812

REACTIONS (5)
  - Pollakiuria [None]
  - Urinary tract pain [None]
  - Urine flow decreased [None]
  - Visual impairment [None]
  - Dizziness [None]
